FAERS Safety Report 24147157 (Version 1)
Quarter: 2024Q3

REPORT INFORMATION
  Report Type: Spontaneous
  Country: US (occurrence: None)
  Receive Date: 20240726
  Receipt Date: 20240726
  Transmission Date: 20241017
  Serious: No
  Sender: Public
  Company Number: None

PATIENT
  Age: 28 Year
  Sex: Female

DRUGS (1)
  1. ZURZUVAE [Suspect]
     Active Substance: ZURANOLONE
     Indication: Perinatal depression
     Dosage: 50 MG AT BEDTIME ORAL?
     Route: 048
     Dates: start: 20240716

REACTIONS (5)
  - Anxiety [None]
  - Paranoia [None]
  - Feeling jittery [None]
  - Bradyphrenia [None]
  - Muscle twitching [None]

NARRATIVE: CASE EVENT DATE: 20240716
